FAERS Safety Report 23272195 (Version 1)
Quarter: 2023Q4

REPORT INFORMATION
  Report Type: Spontaneous
  Country: US (occurrence: US)
  Receive Date: 20231207
  Receipt Date: 20231207
  Transmission Date: 20240110
  Serious: No
  Sender: FDA-Public Use
  Company Number: US-ACELLA PHARMACEUTICALS, LLC-2023ALO00035

PATIENT
  Sex: Male

DRUGS (1)
  1. DHIVY [Suspect]
     Active Substance: CARBIDOPA\LEVODOPA
     Indication: Parkinson^s disease

REACTIONS (3)
  - Parkinson^s disease [Not Recovered/Not Resolved]
  - Drooling [Not Recovered/Not Resolved]
  - Condition aggravated [Not Recovered/Not Resolved]
